FAERS Safety Report 5745668-2 (Version None)
Quarter: 2008Q2

REPORT INFORMATION
  Report Type: 
  Country: None (occurrence: None)
  Receive Date: 20080521
  Receipt Date: 20080519
  Transmission Date: 20081010
  Serious: Yes (Other)
  Sender: FDA-Public Use
  Company Number: PHNU2007DE03983

PATIENT
  Age: 64 Year
  Sex: Male
  Weight: 66 kg

DRUGS (5)
  1. RASILEZ [Suspect]
     Indication: HYPERTENSION
     Dosage: 150 MG
     Route: 048
     Dates: start: 20071022, end: 20071001
  2. IRBESARTAN [Concomitant]
     Indication: HYPERTENSION
     Dosage: 300 MG/DAY
     Route: 048
     Dates: start: 20070701
  3. EBRANTIL [Concomitant]
     Indication: HYPERTENSION
     Dosage: 90 MG, BID
  4. RASILEZ [Suspect]
     Dosage: 300 MG, UNK
     Route: 048
     Dates: start: 20071027, end: 20071030
  5. AMLODIPINE [Concomitant]
     Dosage: 10 MG/DAY
     Route: 048
     Dates: start: 20070701

REACTIONS (3)
  - BLOOD PRESSURE FLUCTUATION [None]
  - BLOOD PRESSURE INCREASED [None]
  - BLOOD PRESSURE SYSTOLIC INCREASED [None]
